FAERS Safety Report 9209756 (Version 1)
Quarter: 2013Q1

REPORT INFORMATION
  Report Type: Spontaneous
  Country: US (occurrence: None)
  Receive Date: 20120820
  Receipt Date: 20120820
  Transmission Date: 20140127
  Serious: No
  Sender: FDA-Public Use
  Company Number: 1000030104

PATIENT
  Age: 49 Year
  Sex: Male

DRUGS (4)
  1. VIIBRYD (VILAZODONE)(10 MILLIGRAM, TABLETS) [Suspect]
     Indication: DEPRESSION
     Route: 048
     Dates: start: 20120403, end: 20120409
  2. VENLAFAXINE  (VENLAFAXINE) (VENLAFAXINE) [Concomitant]
  3. VICODIN (HYDROCODONE, ACETAMINOPHEN ) (HYDROCODONE, ACETAMINOPHEN) [Concomitant]
  4. BUPROPION (BUPROPION) (BUPROPION) [Concomitant]

REACTIONS (5)
  - Panic attack [None]
  - Fatigue [None]
  - Increased appetite [None]
  - Decreased appetite [None]
  - Malaise [None]
